FAERS Safety Report 4928548-1 (Version None)
Quarter: 2006Q1

REPORT INFORMATION
  Report Type: 
  Country: None (occurrence: None)
  Receive Date: 20060223
  Receipt Date: 20060215
  Transmission Date: 20060701
  Serious: Yes (Other)
  Sender: FDA-Public Use
  Company Number: USA-2006-0023587

PATIENT
  Age: 49 Year
  Sex: Female

DRUGS (1)
  1. OXYCONTIN [Suspect]

REACTIONS (3)
  - CRYING [None]
  - EMOTIONAL DISTRESS [None]
  - SUICIDAL IDEATION [None]
